FAERS Safety Report 20854542 (Version 1)
Quarter: 2022Q2

REPORT INFORMATION
  Report Type: Spontaneous
  Country: DE (occurrence: DE)
  Receive Date: 20220520
  Receipt Date: 20220520
  Transmission Date: 20220721
  Serious: Yes (Other)
  Sender: FDA-Public Use
  Company Number: DE-ORGANON-O2205DEU001596

PATIENT
  Age: 40 Year
  Sex: Female

DRUGS (2)
  1. EBASTINE [Suspect]
     Active Substance: EBASTINE
     Indication: Urticaria
     Dosage: 2 TIMES A DAY
     Route: 048
  2. IRBESARTAN [Concomitant]
     Active Substance: IRBESARTAN
     Indication: Hypertension
     Dosage: UNK

REACTIONS (2)
  - Gastric bypass [Unknown]
  - Product prescribing issue [Unknown]
